FAERS Safety Report 14507931 (Version 1)
Quarter: 2018Q1

REPORT INFORMATION
  Report Type: Spontaneous
  Country: US (occurrence: US)
  Receive Date: 20180208
  Receipt Date: 20180208
  Transmission Date: 20180509
  Serious: Yes (Other)
  Sender: FDA-Public Use
  Company Number: PHEH2018US004517

PATIENT
  Sex: Female

DRUGS (1)
  1. AFINITOR [Suspect]
     Active Substance: EVEROLIMUS
     Indication: BREAST CANCER
     Dosage: 5 MG, QD
     Route: 048

REACTIONS (6)
  - Bone lesion [Unknown]
  - Facial pain [Unknown]
  - Depression [Unknown]
  - Liver function test increased [Unknown]
  - Hypermetabolism [Unknown]
  - Leukopenia [Unknown]
